FAERS Safety Report 9522628 (Version 6)
Quarter: 2014Q1

REPORT INFORMATION
  Report Type: Spontaneous
  Country: CA (occurrence: CA)
  Receive Date: 20130913
  Receipt Date: 20140313
  Transmission Date: 20141002
  Serious: Yes (Life-Threatening, Hospitalization, Disabling, Other)
  Sender: FDA-Public Use
  Company Number: CA-PFIZER INC-2013261043

PATIENT
  Age: 78 Year
  Sex: Male
  Weight: 57 kg

DRUGS (9)
  1. LIPITOR [Suspect]
     Indication: BLOOD CHOLESTEROL ABNORMAL
     Dosage: 10 MG, 1X/DAY
     Dates: start: 1990, end: 201206
  2. ATIVAN [Concomitant]
     Indication: INSOMNIA
     Dosage: 1 MG, AS NEEDED
     Dates: start: 2001
  3. ATIVAN [Concomitant]
     Indication: RELAXATION THERAPY
  4. TEVA-GLYBURIDE [Concomitant]
     Dosage: 5 MG, 2X/DAY (IN THE MORNING AND EVENING)
     Dates: start: 1990
  5. RATIO METFORMIN [Concomitant]
     Indication: DIABETES MELLITUS
     Dosage: 850 MG, 3X/DAY (MORNING, MIDDAY + EVENING)
     Dates: start: 1990
  6. RATIO RAMIPRIL [Concomitant]
     Indication: BLOOD PRESSURE ABNORMAL
     Dosage: 10 MG, 1X/DAY (IN THE MORNING)
     Dates: start: 1990
  7. APO BISOPROLOL [Concomitant]
     Dosage: 5 MG, 1X/DAY (IN THE MORNING)
     Dates: start: 1990
  8. EZETROL [Concomitant]
     Indication: BLOOD CHOLESTEROL ABNORMAL
     Dosage: 10 MG, UNK
     Dates: start: 2012
  9. MYLAN NITRO [Concomitant]
     Indication: CARDIAC DISORDER
     Dosage: 0.4 MG, UNK
     Dates: start: 199003

REACTIONS (11)
  - Myopathy [Recovered/Resolved]
  - Myopathy toxic [Recovered/Resolved]
  - Polymyositis [Recovered/Resolved]
  - Bronchiectasis [Unknown]
  - Muscle atrophy [Recovered/Resolved]
  - Asthenia [Recovered/Resolved]
  - Weight decreased [Recovered/Resolved]
  - Activities of daily living impaired [Unknown]
  - Lymph node calcification [Unknown]
  - Gait disturbance [Recovered/Resolved]
  - Dysphonia [Recovered/Resolved]
